FAERS Safety Report 24606017 (Version 1)
Quarter: 2024Q4

REPORT INFORMATION
  Report Type: Report from Study
  Country: CA (occurrence: CA)
  Receive Date: 20241111
  Receipt Date: 20241111
  Transmission Date: 20250115
  Serious: Yes (Other)
  Sender: ABBVIE
  Company Number: CA-ABBVIE-5997109

PATIENT
  Age: 44 Year
  Sex: Female

DRUGS (1)
  1. SKYRIZI [Suspect]
     Active Substance: RISANKIZUMAB-RZAA
     Indication: Psoriasis
     Route: 058
     Dates: start: 20220307

REACTIONS (6)
  - Hysterectomy [Unknown]
  - Cough [Recovering/Resolving]
  - Sneezing [Recovering/Resolving]
  - Dry skin [Unknown]
  - Rhinorrhoea [Recovering/Resolving]
  - Dermatitis psoriasiform [Unknown]

NARRATIVE: CASE EVENT DATE: 20241106
